FAERS Safety Report 18431271 (Version 2)
Quarter: 2020Q4

REPORT INFORMATION
  Report Type: Spontaneous
  Country: US (occurrence: US)
  Receive Date: 20201027
  Receipt Date: 20201027
  Transmission Date: 20210114
  Serious: No
  Sender: FDA-Public Use
  Company Number: US-PFIZER INC-2020412771

PATIENT
  Age: 54 Year
  Sex: Female
  Weight: 62.6 kg

DRUGS (1)
  1. EXEMESTANE. [Suspect]
     Active Substance: EXEMESTANE
     Indication: BREAST CANCER FEMALE
     Dosage: 25 MG, DAILY
     Route: 048
     Dates: start: 202008

REACTIONS (7)
  - Condition aggravated [Unknown]
  - Joint swelling [Unknown]
  - Peripheral swelling [Unknown]
  - Bone pain [Unknown]
  - Pain in extremity [Recovered/Resolved]
  - Arthralgia [Recovered/Resolved]
  - Discomfort [Recovered/Resolved]
